FAERS Safety Report 10378433 (Version 1)
Quarter: 2014Q3

REPORT INFORMATION
  Report Type: Spontaneous
  Country: US (occurrence: US)
  Receive Date: 20140812
  Receipt Date: 20140812
  Transmission Date: 20150326
  Serious: Yes (Other)
  Sender: FDA-Public Use
  Company Number: CHPA2014US010450

PATIENT
  Age: 73 Year
  Sex: Female

DRUGS (1)
  1. EX-LAX UNKNOWN [Suspect]
     Active Substance: SENNOSIDES
     Indication: LAXATIVE SUPPORTIVE CARE
     Route: 048

REACTIONS (1)
  - Ileus paralytic [Not Recovered/Not Resolved]
